FAERS Safety Report 13157275 (Version 2)
Quarter: 2017Q1

REPORT INFORMATION
  Report Type: Spontaneous
  Country: BR (occurrence: BR)
  Receive Date: 20170127
  Receipt Date: 20170130
  Transmission Date: 20170428
  Serious: Yes (Hospitalization)
  Sender: FDA-Public Use
  Company Number: BR-UCBSA-2017002614

PATIENT
  Age: 76 Year
  Sex: Male
  Weight: 64 kg

DRUGS (8)
  1. PROLOPA HBS [Concomitant]
     Active Substance: BENSERAZIDE\LEVODOPA
     Indication: PARKINSON^S DISEASE
     Dosage: UNK, ONCE DAILY (QD),
     Route: 048
     Dates: start: 201009
  2. NEUPRO [Suspect]
     Active Substance: ROTIGOTINE
     Dosage: 6 MG, UNK
     Dates: start: 201607
  3. BENSERAZIDE HYDROCHLORIDE W/LEVODOPA [Concomitant]
     Indication: PARKINSON^S DISEASE
     Dosage: UNK, ONCE DAILY (QD), 8 TAB/DAY
     Route: 048
     Dates: start: 201009
  4. CRESTOR [Concomitant]
     Active Substance: ROSUVASTATIN CALCIUM
     Indication: BLOOD CHOLESTEROL ABNORMAL
     Dosage: 0.5 MG, ONCE DAILY (QD), STARTED 10 YEARS AGO
     Route: 048
  5. MANTIDAN [Concomitant]
     Active Substance: AMANTADINE HYDROCHLORIDE
     Indication: PARKINSON^S DISEASE
     Dosage: 100 MG, 2X/DAY (BID)
     Route: 048
     Dates: start: 2014
  6. STABIL [Concomitant]
     Active Substance: PRAMIPEXOLE DIHYDROCHLORIDE
     Indication: PARKINSON^S DISEASE
     Dosage: 0.125 MG, ONCE DAILY (QD)
     Route: 048
     Dates: start: 201609
  7. NEUPRO [Suspect]
     Active Substance: ROTIGOTINE
     Indication: PARKINSON^S DISEASE
     Dosage: 4 MG, UNK
     Dates: start: 2014, end: 201607
  8. RASAGILINE [Concomitant]
     Active Substance: RASAGILINE
     Indication: PARKINSON^S DISEASE
     Dosage: UNK, ONCE DAILY (QD)
     Route: 048
     Dates: start: 201609

REACTIONS (2)
  - Pyrexia [Recovered/Resolved]
  - Urinary tract infection [Recovered/Resolved]

NARRATIVE: CASE EVENT DATE: 20170118
